FAERS Safety Report 19469977 (Version 3)
Quarter: 2021Q3

REPORT INFORMATION
  Report Type: Spontaneous
  Country: ES (occurrence: ES)
  Receive Date: 20210628
  Receipt Date: 20210720
  Transmission Date: 20211014
  Serious: Yes (Other)
  Sender: FDA-Public Use
  Company Number: ES-MYLANLABS-2021M1037265

PATIENT
  Age: 68 Year
  Sex: Male
  Weight: 43 kg

DRUGS (9)
  1. CETUXIMAB. [Suspect]
     Active Substance: CETUXIMAB
     Indication: ADENOCARCINOMA OF COLON
     Dosage: 250 MILLIGRAM/SQ. METER
  2. CETUXIMAB. [Suspect]
     Active Substance: CETUXIMAB
     Indication: METASTASES TO LIVER
     Dosage: 400 MILLIGRAM/SQ. METER, CYCLE (RECEIVED 3 CYCLE)
     Route: 042
  3. FLUOROURACIL. [Suspect]
     Active Substance: FLUOROURACIL
     Indication: METASTASES TO LIVER
     Dosage: 400 MILLIGRAM/SQ. METER, CYCLE (RECEIVED 3 CYCLE; 400 MG/M2 BOLUS, FOLLOWED BY 1200 MG/M2)
     Route: 042
  4. FLUOROURACIL. [Suspect]
     Active Substance: FLUOROURACIL
     Indication: ADENOCARCINOMA OF COLON
     Dosage: 1200 MILLIGRAM/SQ. METER, CYCLE (RECEIVED 3 CYCLE; 400 MG/M2 BOLUS, FOLLOWED BY 1200 MG/M2)
     Route: 042
  5. OXALIPLATIN. [Suspect]
     Active Substance: OXALIPLATIN
     Indication: ADENOCARCINOMA OF COLON
  6. OXALIPLATIN. [Suspect]
     Active Substance: OXALIPLATIN
     Indication: METASTASES TO LIVER
  7. FLUOROURACIL. [Suspect]
     Active Substance: FLUOROURACIL
     Indication: RECTOSIGMOID CANCER STAGE IV
  8. OXALIPLATIN. [Suspect]
     Active Substance: OXALIPLATIN
     Indication: RECTOSIGMOID CANCER STAGE IV
     Dosage: 85 MILLIGRAM/SQ. METER, CYCLE (RECEIVED 3 CYCLE)
     Route: 042
  9. CETUXIMAB. [Suspect]
     Active Substance: CETUXIMAB
     Indication: RECTOSIGMOID CANCER STAGE IV

REACTIONS (4)
  - Necrotising oesophagitis [Unknown]
  - Gastrointestinal toxicity [Unknown]
  - Enteritis [Unknown]
  - Oesophageal ulcer [Unknown]
